FAERS Safety Report 6414902-8 (Version None)
Quarter: 2009Q4

REPORT INFORMATION
  Report Type: 
  Country: None (occurrence: None)
  Receive Date: 20091026
  Receipt Date: 20090327
  Transmission Date: 20100525
  Serious: No
  Sender: FDA-Public Use
  Company Number: US-ABBOTT-09P-163-0565369-00

PATIENT
  Sex: Female
  Weight: 61.29 kg

DRUGS (5)
  1. LUPRON DEPOT [Suspect]
     Indication: ENDOMETRIOSIS
     Route: 030
     Dates: start: 20080101, end: 20080101
  2. LUPRON DEPOT [Suspect]
     Route: 030
     Dates: start: 20090101, end: 20090326
  3. ADDERALL 10 [Concomitant]
     Indication: ATTENTION DEFICIT/HYPERACTIVITY DISORDER
  4. TRILEPTAL [Concomitant]
     Indication: AFFECTIVE DISORDER
  5. PAXIL [Concomitant]
     Indication: AFFECTIVE DISORDER

REACTIONS (9)
  - DRUG INEFFECTIVE [None]
  - EMOTIONAL DISORDER [None]
  - FEELING HOT [None]
  - FORMICATION [None]
  - ILL-DEFINED DISORDER [None]
  - IMPAIRED WORK ABILITY [None]
  - MENORRHAGIA [None]
  - MIGRAINE [None]
  - PAIN [None]
